FAERS Safety Report 19760909 (Version 1)
Quarter: 2021Q3

REPORT INFORMATION
  Report Type: Spontaneous
  Country: US (occurrence: US)
  Receive Date: 20210828
  Receipt Date: 20210828
  Transmission Date: 20211014
  Serious: Yes (Other)
  Sender: FDA-Public Use
  Company Number: None

PATIENT
  Age: 41 Year
  Sex: Female
  Weight: 103.5 kg

DRUGS (2)
  1. VIT C 1000MG [Concomitant]
  2. REGEN?COV [Suspect]
     Active Substance: CASIRIVIMAB\IMDEVIMAB

REACTIONS (5)
  - Abdominal distension [None]
  - Injection site pruritus [None]
  - Peripheral swelling [None]
  - Injection site swelling [None]
  - Pruritus [None]

NARRATIVE: CASE EVENT DATE: 20210826
